FAERS Safety Report 24715923 (Version 4)
Quarter: 2024Q4

REPORT INFORMATION
  Report Type: Spontaneous
  Country: CA (occurrence: CA)
  Receive Date: 20241210
  Receipt Date: 20241223
  Transmission Date: 20250114
  Serious: Yes (Other)
  Sender: CELLTRION
  Company Number: CA-PFIZER INC-202400315775

PATIENT

DRUGS (1)
  1. INFLECTRA [Suspect]
     Active Substance: INFLIXIMAB-DYYB
     Indication: Crohn^s disease
     Dosage: 5 MG/KG (370 MG), AT 0, 2, 6 WEEK THEN EVERY 8 WEEKS (WEEK 0)
     Route: 042
     Dates: start: 20241129, end: 20241129

REACTIONS (10)
  - Pharyngeal paraesthesia [Not Recovered/Not Resolved]
  - Asthenopia [Recovered/Resolved]
  - Discomfort [Recovering/Resolving]
  - Throat tightness [Recovered/Resolved]
  - Throat irritation [Recovering/Resolving]
  - Sensation of foreign body [Unknown]
  - Laryngeal pain [Not Recovered/Not Resolved]
  - Hypersensitivity [Not Recovered/Not Resolved]
  - Laryngitis [Recovering/Resolving]
  - Bronchitis viral [Recovering/Resolving]

NARRATIVE: CASE EVENT DATE: 20240101
